FAERS Safety Report 12091758 (Version 1)
Quarter: 2016Q1

REPORT INFORMATION
  Report Type: Report from Study
  Country: US (occurrence: US)
  Receive Date: 20160218
  Receipt Date: 20160218
  Transmission Date: 20160526
  Serious: Yes (Hospitalization, Other)
  Sender: FDA-Public Use
  Company Number: US-GILEAD-2016-0198905

PATIENT
  Age: 68 Year
  Sex: Male

DRUGS (1)
  1. RANOLAZINE [Suspect]
     Active Substance: RANOLAZINE
     Indication: ANGINA PECTORIS
     Dosage: 1000 MG, UNK
     Route: 048

REACTIONS (6)
  - Muscle spasms [Unknown]
  - Pulmonary fibrosis [Unknown]
  - Dizziness [Unknown]
  - Balance disorder [Unknown]
  - Barrett^s oesophagus [Unknown]
  - Chest pain [Unknown]
